FAERS Safety Report 18990313 (Version 1)
Quarter: 2021Q1

REPORT INFORMATION
  Report Type: Spontaneous
  Country: TN (occurrence: TN)
  Receive Date: 20210310
  Receipt Date: 20210310
  Transmission Date: 20210420
  Serious: Yes (Other)
  Sender: FDA-Public Use
  Company Number: TN-LUPIN PHARMACEUTICALS INC.-2021-02904

PATIENT
  Age: 35 Year
  Sex: Female

DRUGS (6)
  1. ISONIAZID. [Suspect]
     Active Substance: ISONIAZID
     Indication: DISSEMINATED TUBERCULOSIS
     Dosage: UNK (INTENSIVE TREATMENT FOR 60 DAYS. FURTHER THE TREATMENT WAS KEPT ON FOR 10 MONTHS)
     Route: 065
  2. RIFAMPIN. [Suspect]
     Active Substance: RIFAMPIN
     Indication: DISSEMINATED TUBERCULOSIS
     Dosage: UNK (INTENSIVE TREATMENT FOR 60 DAYS. FURTHER THE TREATMENT WAS KEPT ON FOR 10 MONTHS)
     Route: 065
  3. ETHAMBUTOL [Suspect]
     Active Substance: ETHAMBUTOL HYDROCHLORIDE
     Indication: DISSEMINATED TUBERCULOSIS
     Dosage: UNK
     Route: 065
  4. AMOXICILLIN/CLAVULANIC ACID [Suspect]
     Active Substance: AMOXICILLIN\CLAVULANIC ACID
     Indication: ANTIBIOTIC THERAPY
     Dosage: UNK
     Route: 042
  5. PYRAZINAMIDE. [Suspect]
     Active Substance: PYRAZINAMIDE
     Indication: DISSEMINATED TUBERCULOSIS
     Dosage: UNK
     Route: 065
  6. CIPROFLOXACIN. [Suspect]
     Active Substance: CIPROFLOXACIN
     Indication: ANTIBIOTIC THERAPY
     Dosage: UNK
     Route: 042

REACTIONS (3)
  - Exposure during pregnancy [Unknown]
  - Premature delivery [Unknown]
  - Maternal exposure during breast feeding [Unknown]
